FAERS Safety Report 6211153-7 (Version None)
Quarter: 2009Q2

REPORT INFORMATION
  Report Type: 
  Country: None (occurrence: None)
  Receive Date: 20090602
  Receipt Date: 20090522
  Transmission Date: 20091009
  Serious: Yes (Hospitalization)
  Sender: FDA-Public Use
  Company Number: PL-ROCHE-633650

PATIENT
  Sex: Male
  Weight: 90.5 kg

DRUGS (11)
  1. METHOXY POLYETHYLENE GLYCOL-EPOETIN BETA [Suspect]
     Dosage: LAST DOSE PRIOR TO SAE: 20 OCT 2008; FREQUENCY: 1 INJECTION/MONTH
     Route: 058
     Dates: start: 20080505
  2. DARBEPOETIN ALFA [Suspect]
     Dosage: AS PER PROTOCOL, THE PATIENT RECEIVED DARBEPOETIN ALFA IN THE SCREENING PHASE.
     Route: 058
  3. CALCIUM [Concomitant]
     Dosage: DRUG NAME REPORTED AS CALCIUM CELBOUICUSE
     Dates: start: 20060615
  4. NATRIUM BICARBONICUM [Concomitant]
     Dates: start: 20080803, end: 20081204
  5. LOSARTAN POTASSIUM [Concomitant]
     Dates: start: 20070316
  6. BISOPROLOL [Concomitant]
     Dates: start: 20060817
  7. DOXAZOSIN MESYLATE [Concomitant]
     Dates: start: 20030708, end: 20081128
  8. FUROSEMIDUM [Concomitant]
     Dates: start: 20011114
  9. ALLOPURINOL [Concomitant]
     Dates: start: 19980915
  10. SIMVASTATIN [Concomitant]
     Dates: start: 20081205
  11. AMLODIPINE [Concomitant]
     Dates: start: 20081128

REACTIONS (1)
  - RENAL IMPAIRMENT [None]
